FAERS Safety Report 10183062 (Version 1)
Quarter: 2014Q2

REPORT INFORMATION
  Report Type: Spontaneous
  Country: US (occurrence: US)
  Receive Date: 20140520
  Receipt Date: 20140520
  Transmission Date: 20141212
  Serious: No
  Sender: FDA-Public Use
  Company Number: US-PFIZER INC-2014133244

PATIENT
  Age: 79 Year
  Sex: Female
  Weight: 68.3 kg

DRUGS (3)
  1. AROMASIN [Suspect]
     Indication: NEOPLASM MALIGNANT
     Dosage: 25 MG, 1X/DAY
     Dates: start: 2014, end: 20140512
  2. LANTUS [Concomitant]
     Indication: DIABETES MELLITUS
     Dosage: 15 IU, DAILY
  3. NOVOLOG [Concomitant]
     Indication: DIABETES MELLITUS
     Dosage: UNK, FOUR TO FIVE TIMES A DAY

REACTIONS (4)
  - Skin irritation [Unknown]
  - Pruritus [Unknown]
  - Skin burning sensation [Unknown]
  - Constipation [Unknown]
